FAERS Safety Report 7131714-0 (Version None)
Quarter: 2010Q4

REPORT INFORMATION
  Report Type: 
  Country: None (occurrence: None)
  Receive Date: 20101201
  Receipt Date: 20101123
  Transmission Date: 20110411
  Serious: Yes (Life-Threatening)
  Sender: FDA-Public Use
  Company Number: GB-PFIZER INC-2010144399

PATIENT
  Age: 61 Year
  Sex: Female

DRUGS (2)
  1. PHENYTOIN [Suspect]
     Indication: STATUS EPILEPTICUS
  2. PHENOBARBITAL [Suspect]
     Indication: STATUS EPILEPTICUS

REACTIONS (5)
  - NEUTROPENIA [None]
  - PYREXIA [None]
  - RENAL FAILURE [None]
  - RESPIRATORY FAILURE [None]
  - TOXIC EPIDERMAL NECROLYSIS [None]
